FAERS Safety Report 7276419-0 (Version None)
Quarter: 2011Q1

REPORT INFORMATION
  Report Type: 
  Country: None (occurrence: None)
  Receive Date: 20110204
  Receipt Date: 20110126
  Transmission Date: 20110831
  Serious: Yes (Hospitalization)
  Sender: FDA-Public Use
  Company Number: NL-PFIZER INC-2011019410

PATIENT
  Age: 48 Year
  Sex: Male

DRUGS (2)
  1. LYRICA [Suspect]
     Dosage: 25 MG, 3X/DAY
  2. BACLOFEN [Concomitant]
     Dosage: 10 MG, 3X/DAY

REACTIONS (1)
  - CARDIAC FIBRILLATION [None]
